FAERS Safety Report 8170770-8 (Version None)
Quarter: 2012Q1

REPORT INFORMATION
  Report Type: 
  Country: None (occurrence: None)
  Receive Date: 20120228
  Receipt Date: 20120223
  Transmission Date: 20120608
  Serious: No
  Sender: FDA-Public Use
  Company Number: US-PFIZER INC-2012048900

PATIENT
  Sex: Female
  Weight: 58.957 kg

DRUGS (5)
  1. YASMIN [Concomitant]
     Dosage: UNK
  2. CLEOCIN HYDROCHLORIDE [Suspect]
     Indication: VAGINITIS BACTERIAL
     Dosage: 100 MG, 1X/DAY
     Route: 067
     Dates: start: 20111201, end: 20111201
  3. FLAGYL [Suspect]
     Indication: VAGINITIS BACTERIAL
     Dosage: UNK
     Dates: start: 20111201, end: 20111201
  4. CLEOCIN HYDROCHLORIDE [Suspect]
     Dosage: 100 MG, 1X/DAY
     Route: 067
     Dates: start: 20120101, end: 20120101
  5. ZYRTEC [Concomitant]
     Dosage: UNK

REACTIONS (1)
  - VAGINITIS BACTERIAL [None]
